FAERS Safety Report 25699156 (Version 1)
Quarter: 2025Q3

REPORT INFORMATION
  Report Type: Report from Study
  Country: ZA (occurrence: ZA)
  Receive Date: 20250819
  Receipt Date: 20250819
  Transmission Date: 20251020
  Serious: Yes (Other)
  Sender: ROCHE
  Company Number: ZA-ROCHE-10000358907

PATIENT
  Age: 78 Year
  Sex: Female

DRUGS (1)
  1. OCREVUS [Suspect]
     Active Substance: OCRELIZUMAB
     Indication: Multiple sclerosis
     Dosage: THEREAFTER 600MG EVERY SIX MONTHS.
     Route: 042
     Dates: start: 20250805

REACTIONS (6)
  - Constipation [Unknown]
  - Peripheral swelling [Unknown]
  - Varicose vein [Unknown]
  - Faeces discoloured [Unknown]
  - Pruritus [Not Recovered/Not Resolved]
  - Infection [Unknown]

NARRATIVE: CASE EVENT DATE: 20250805
